FAERS Safety Report 16078888 (Version 1)
Quarter: 2019Q1

REPORT INFORMATION
  Report Type: Report from Study
  Country: US (occurrence: US)
  Receive Date: 20190315
  Receipt Date: 20190315
  Transmission Date: 20190418
  Serious: Yes (Death, Other)
  Sender: FDA-Public Use
  Company Number: US-BRISTOL-MYERS SQUIBB COMPANY-BMS-2019-014307

PATIENT
  Age: 59 Year
  Sex: Male

DRUGS (1)
  1. NIVOLUMAB [Suspect]
     Active Substance: NIVOLUMAB
     Indication: MALIGNANT MELANOMA
     Dosage: UNK, Q3WK
     Route: 042
     Dates: start: 20190205

REACTIONS (15)
  - Alopecia [Recovering/Resolving]
  - Death [Fatal]
  - Fall [Unknown]
  - Malignant neoplasm progression [Unknown]
  - Micturition urgency [Unknown]
  - Seborrhoeic keratosis [Unknown]
  - Vision blurred [Unknown]
  - Insomnia [Unknown]
  - Peripheral swelling [Unknown]
  - Off label use [Unknown]
  - Cough [Unknown]
  - Agitation [Unknown]
  - Nodule [Unknown]
  - Fatigue [Unknown]
  - Dermal cyst [Unknown]

NARRATIVE: CASE EVENT DATE: 201902
